FAERS Safety Report 6448876-0 (Version None)
Quarter: 2009Q4

REPORT INFORMATION
  Report Type: 
  Country: None (occurrence: None)
  Receive Date: 20091112
  Receipt Date: 20080926
  Transmission Date: 20100525
  Serious: Yes (Hospitalization)
  Sender: FDA-Public Use
  Company Number: 2008BH003873

PATIENT
  Age: 45 Year
  Sex: Female
  Weight: 92.5338 kg

DRUGS (14)
  1. SUPRANE [Suspect]
     Indication: MAINTENANCE OF ANAESTHESIA
     Dosage: 4.4 PCT; CONTINUOUS; ENDTR
     Route: 007
     Dates: start: 20080325, end: 20080325
  2. FENTANYL CITRATE [Suspect]
     Indication: MAINTENANCE OF ANAESTHESIA
     Dosage: 650 UG; PRN; IV
     Route: 042
     Dates: start: 20080325, end: 20080325
  3. NEOSTIGMINE METHYLSULATE [Suspect]
     Indication: ANAESTHESIA REVERSAL
     Dosage: 0.2 MG; ONCE; IV
     Route: 042
     Dates: start: 20080325, end: 20080325
  4. DILAUDID [Suspect]
     Indication: MAINTENANCE OF ANAESTHESIA
     Dosage: 2 MG; ONCE; IV
     Route: 042
     Dates: start: 20080325, end: 20080325
  5. MULTIVITAMIN WITH IRON [Suspect]
     Indication: MEDICAL DIET
     Dosage: 1, EVERY DAY; PO
     Route: 048
  6. BLINDED [Suspect]
     Indication: PROPHYLAXIS OF NAUSEA AND VOMITING
     Dosage: 4, ONCE; PO
     Route: 048
     Dates: start: 20080325, end: 20080325
  7. SYNTHROID [Concomitant]
  8. VERSED [Concomitant]
  9. ROCURONIUM BROMIDE [Concomitant]
  10. ANCEF [Concomitant]
  11. LIDOCAINE [Concomitant]
  12. PROPOFOL [Concomitant]
  13. VECURONIUM BROMIDE [Concomitant]
  14. GLYCOPYRROLATE [Concomitant]

REACTIONS (8)
  - BLADDER SPASM [None]
  - CYSTOSTOMY [None]
  - DIZZINESS [None]
  - HAEMATURIA [None]
  - HAEMORRHAGE [None]
  - NAUSEA [None]
  - PYREXIA [None]
  - TACHYCARDIA [None]
